FAERS Safety Report 15453358 (Version 1)
Quarter: 2018Q4

REPORT INFORMATION
  Report Type: Spontaneous
  Country: PT (occurrence: PT)
  Receive Date: 20181001
  Receipt Date: 20181001
  Transmission Date: 20190204
  Serious: Yes (Disabling)
  Sender: FDA-Public Use
  Company Number: PT-TERSERA THERAPEUTICS LLC-TSR2016001771

PATIENT

DRUGS (1)
  1. ZOLADEX [Suspect]
     Active Substance: GOSERELIN ACETATE
     Indication: UTERINE LEIOMYOMA
     Dosage: 1 DOSAGE FORM, QD
     Route: 058
     Dates: start: 20160622, end: 2016

REACTIONS (39)
  - Adnexa uteri pain [Recovering/Resolving]
  - Photophobia [Recovering/Resolving]
  - Impaired reasoning [Recovering/Resolving]
  - Non-alcoholic steatohepatitis [Unknown]
  - Off label use [Unknown]
  - Mood altered [Recovering/Resolving]
  - Dry skin [Recovering/Resolving]
  - Photosensitivity reaction [Recovering/Resolving]
  - Feeling hot [Recovering/Resolving]
  - Hyperhidrosis [Recovering/Resolving]
  - Balance disorder [Recovering/Resolving]
  - Bone pain [Recovering/Resolving]
  - Hyperacusis [Recovering/Resolving]
  - Renal impairment [Unknown]
  - Thyroiditis acute [Unknown]
  - Pituitary enlargement [Unknown]
  - Rash macular [Recovering/Resolving]
  - Fall [Recovering/Resolving]
  - Nephrolithiasis [Unknown]
  - Kidney enlargement [Unknown]
  - Vision blurred [Recovering/Resolving]
  - Abdominal pain [Recovering/Resolving]
  - Chest pain [Recovered/Resolved]
  - Headache [Recovering/Resolving]
  - Breast enlargement [Recovering/Resolving]
  - Disturbance in attention [Recovering/Resolving]
  - Thyroiditis acute [Unknown]
  - Anosmia [Recovering/Resolving]
  - Blood pressure increased [Recovering/Resolving]
  - Ear discomfort [Recovering/Resolving]
  - Anosmia [Unknown]
  - Breast tenderness [Recovering/Resolving]
  - Fatigue [Recovering/Resolving]
  - Weight increased [Recovering/Resolving]
  - Alopecia [Recovering/Resolving]
  - Peripheral swelling [Recovering/Resolving]
  - Product use in unapproved indication [Unknown]
  - Dizziness [Recovering/Resolving]
  - Tachycardia [Recovering/Resolving]

NARRATIVE: CASE EVENT DATE: 20160622
